FAERS Safety Report 10558835 (Version 2)
Quarter: 2014Q4

REPORT INFORMATION
  Report Type: Spontaneous
  Country: DE (occurrence: DE)
  Receive Date: 20141031
  Receipt Date: 20141216
  Transmission Date: 20150529
  Serious: Yes (Death, Other)
  Sender: FDA-Public Use
  Company Number: DE-ABBVIE-14P-062-1302237-00

PATIENT
  Sex: Female

DRUGS (1)
  1. VALPROINSAEURE [Suspect]
     Active Substance: VALPROIC ACID
     Indication: MATERNAL EXPOSURE TIMING UNSPECIFIED
     Route: 064

REACTIONS (3)
  - Pneumothorax [Recovered/Resolved]
  - Foetal exposure during pregnancy [Unknown]
  - Pulmonary fibrosis [Fatal]
